FAERS Safety Report 20444937 (Version 1)
Quarter: 2022Q1

REPORT INFORMATION
  Report Type: Other
  Country: US (occurrence: None)
  Receive Date: 20220208
  Receipt Date: 20220208
  Transmission Date: 20220423
  Serious: Yes (Hospitalization)
  Sender: FDA-Public Use
  Company Number: US-ROCHE-3008132

PATIENT
  Age: 74 Year
  Sex: Female

DRUGS (19)
  1. ESBRIET [Suspect]
     Active Substance: PIRFENIDONE
     Indication: Idiopathic pulmonary fibrosis
     Dosage: TAKE 1 TABLET BY MOUTH 3 TIMES A DAY WITH MEALS
     Route: 048
  2. TRELEGY ELLIPTA [Concomitant]
     Active Substance: FLUTICASONE FUROATE\UMECLIDINIUM BROMIDE\VILANTEROL TRIFENATATE
     Dosage: 100/62/5/25 MCG INHALER
  3. MYRBETRIQ [Concomitant]
     Active Substance: MIRABEGRON
  4. DULOXETINE HYDROCHLORIDE [Concomitant]
     Active Substance: DULOXETINE HYDROCHLORIDE
  5. LISINOPRIL [Concomitant]
     Active Substance: LISINOPRIL
  6. MELOXICAM [Concomitant]
     Active Substance: MELOXICAM
  7. MONTELUKAST SODIUM [Concomitant]
     Active Substance: MONTELUKAST SODIUM
  8. OMEPRAZOLE [Concomitant]
     Active Substance: OMEPRAZOLE
  9. FAMOTIDINE [Concomitant]
     Active Substance: FAMOTIDINE
     Dosage: AS NEEDED, ONLY TOOK ONE PAST YEAR
  10. VITAMIN D3 [Concomitant]
     Active Substance: CHOLECALCIFEROL
     Dosage: 50000 UNITS 1XWEEK
  11. LATANOPROST [Concomitant]
     Active Substance: LATANOPROST
     Dosage: 0.005 % EYE DROPS
  12. RESTASIS [Concomitant]
     Active Substance: CYCLOSPORINE
  13. BLACK COHOSH [Concomitant]
     Active Substance: BLACK COHOSH
  14. CANNABIDIOL\HERBALS [Concomitant]
     Active Substance: CANNABIDIOL\HERBALS
  15. TYLENOL [Concomitant]
     Active Substance: ACETAMINOPHEN
  16. AZELASTINE [Concomitant]
     Active Substance: AZELASTINE
     Dosage: 0.1% SPRAY
  17. CEPHALEXIN [Concomitant]
     Active Substance: CEPHALEXIN
  18. CIPROFLOXACIN HYDROCHLORIDE [Concomitant]
     Active Substance: CIPROFLOXACIN HYDROCHLORIDE
  19. ATORVASTATIN [Concomitant]
     Active Substance: ATORVASTATIN

REACTIONS (7)
  - Dehydration [Unknown]
  - Bronchitis [Unknown]
  - Vomiting [Unknown]
  - Nausea [Recovered/Resolved]
  - Weight decreased [Unknown]
  - Gastric disorder [Unknown]
  - Condition aggravated [Unknown]

NARRATIVE: CASE EVENT DATE: 20220101
